FAERS Safety Report 9095571 (Version 1)
Quarter: 2013Q1

REPORT INFORMATION
  Report Type: Report from Study
  Country: US (occurrence: US)
  Receive Date: 20130220
  Receipt Date: 20130220
  Transmission Date: 20140127
  Serious: Yes (Hospitalization, Other)
  Sender: FDA-Public Use
  Company Number: PHHO2013US002272

PATIENT
  Age: 51 Year
  Sex: Female

DRUGS (1)
  1. ZORTRESS [Suspect]
     Indication: ORGAN TRANSPLANT
     Dosage: 0.75 MG, UNK
     Route: 048
     Dates: start: 20081021

REACTIONS (4)
  - Pneumothorax [Recovered/Resolved]
  - Vomiting [Recovered/Resolved]
  - Lung adenocarcinoma [Not Recovered/Not Resolved]
  - Nausea [Recovered/Resolved]
